FAERS Safety Report 5310141-2 (Version None)
Quarter: 2007Q2

REPORT INFORMATION
  Report Type: 
  Country: None (occurrence: None)
  Receive Date: 20070427
  Receipt Date: 20070423
  Transmission Date: 20071010
  Serious: Yes (Other)
  Sender: FDA-Public Use
  Company Number: AR-ROCHE-494316

PATIENT
  Sex: Male

DRUGS (1)
  1. RIVOTRIL [Suspect]
     Indication: PANIC ATTACK
     Route: 048
     Dates: start: 20030615

REACTIONS (2)
  - TONGUE BLISTERING [None]
  - TONGUE DISORDER [None]
